FAERS Safety Report 7362511-9 (Version None)
Quarter: 2011Q1

REPORT INFORMATION
  Report Type: 
  Country: None (occurrence: None)
  Receive Date: 20110318
  Receipt Date: 20100616
  Transmission Date: 20110831
  Serious: Yes (Life-Threatening)
  Sender: FDA-Public Use
  Company Number: JP-ASTRAZENECA-2011SE14707

PATIENT
  Age: 81 Year
  Sex: Male

DRUGS (14)
  1. LACTEC [Concomitant]
  2. SODIUM CHLORIDE [Concomitant]
  3. DEPAS [Concomitant]
     Route: 048
  4. RACOL [Concomitant]
  5. GASMOTIN [Concomitant]
     Route: 048
  6. TANATRIL [Concomitant]
     Route: 048
     Dates: end: 20100517
  7. MEROPEN [Suspect]
     Indication: PNEUMONIA ASPIRATION
     Route: 042
     Dates: start: 20100425, end: 20100507
  8. BAKTAR [Concomitant]
     Route: 048
     Dates: start: 20100428
  9. MUCOSOLVAN [Concomitant]
     Route: 048
  10. TAKEPRON [Concomitant]
     Route: 048
  11. ARTANE [Concomitant]
     Route: 048
  12. TPN ELECTROLYTES IN PLASTIC CONTAINER [Concomitant]
     Dates: start: 20100427, end: 20100517
  13. MADOPAR [Concomitant]
     Route: 048
  14. GRAMALIL [Concomitant]
     Route: 048

REACTIONS (1)
  - HYPERKALAEMIA [None]
